FAERS Safety Report 13904291 (Version 2)
Quarter: 2017Q3

REPORT INFORMATION
  Report Type: Spontaneous
  Country: CH (occurrence: CH)
  Receive Date: 20170825
  Receipt Date: 20170831
  Transmission Date: 20171127
  Serious: Yes (Hospitalization)
  Sender: FDA-Public Use
  Company Number: CH-BEH-2017083101

PATIENT
  Sex: Male

DRUGS (2)
  1. PRIVIGEN [Suspect]
     Active Substance: HUMAN IMMUNOGLOBULIN G
     Indication: MYASTHENIA GRAVIS
     Dosage: 60 G (3 X 20 G), QMT
     Route: 042
     Dates: start: 20160530, end: 201611
  2. PRIVIGEN [Suspect]
     Active Substance: HUMAN IMMUNOGLOBULIN G
     Dosage: 15 G, QMT
     Route: 042
     Dates: start: 20160530, end: 201611

REACTIONS (3)
  - Asthenia [Recovering/Resolving]
  - Pneumonia influenzal [Recovering/Resolving]
  - Dyspnoea [Recovering/Resolving]
